FAERS Safety Report 10457479 (Version 1)
Quarter: 2014Q3

REPORT INFORMATION
  Report Type: Spontaneous
  Country: US (occurrence: US)
  Receive Date: 20140916
  Receipt Date: 20140916
  Transmission Date: 20150326
  Serious: No
  Sender: FDA-Public Use
  Company Number: US-PFIZER INC-2014253579

PATIENT
  Age: 62 Year
  Sex: Female
  Weight: 74 kg

DRUGS (2)
  1. PREMARIN [Suspect]
     Active Substance: ESTROGENS, CONJUGATED
     Indication: PRURITUS
  2. PREMARIN [Suspect]
     Active Substance: ESTROGENS, CONJUGATED
     Indication: OESTROGEN REPLACEMENT THERAPY
     Dosage: 1 G, 2X/WEEK

REACTIONS (3)
  - Vulvovaginal discomfort [Unknown]
  - Vulvovaginal mycotic infection [Unknown]
  - Vulvovaginal pruritus [Unknown]
